FAERS Safety Report 7045882-2 (Version None)
Quarter: 2010Q4

REPORT INFORMATION
  Report Type: 
  Country: None (occurrence: None)
  Receive Date: 20101014
  Receipt Date: 20100930
  Transmission Date: 20110411
  Serious: Yes (Hospitalization)
  Sender: FDA-Public Use
  Company Number: PHHY2010US65263

PATIENT
  Sex: Female

DRUGS (1)
  1. AFINITOR [Suspect]
     Indication: RENAL CANCER
     Dosage: 05 MG DAILY
     Route: 048
     Dates: start: 20100401

REACTIONS (3)
  - BONE NEOPLASM [None]
  - PROSTHESIS IMPLANTATION [None]
  - TUMOUR EXCISION [None]
